FAERS Safety Report 7757880-1 (Version None)
Quarter: 2011Q3

REPORT INFORMATION
  Report Type: 
  Country: None (occurrence: None)
  Receive Date: 20110918
  Receipt Date: 20110906
  Transmission Date: 20111222
  Serious: Yes (Death)
  Sender: FDA-Public Use
  Company Number: US-BRISTOL-MYERS SQUIBB COMPANY-16065112

PATIENT

DRUGS (3)
  1. CARMUSTINE [Suspect]
     Indication: HODGKIN'S DISEASE RECURRENT
     Dosage: ON DAY 6
  2. CYCLOPHOSPHAMIDE [Suspect]
     Indication: HODGKIN'S DISEASE RECURRENT
     Dosage: 1DF:1.5G/SQ.M FROM DAY 6  TO DAY 3
  3. ETOPOSIDE [Suspect]
     Indication: HODGKIN'S DISEASE RECURRENT
     Dosage: 1DF:100-150 MG/SQ.M

REACTIONS (1)
  - DEATH [None]
